FAERS Safety Report 11806406 (Version 1)
Quarter: 2015Q4

REPORT INFORMATION
  Report Type: Spontaneous
  Country: US (occurrence: US)
  Receive Date: 20151207
  Receipt Date: 20151207
  Transmission Date: 20160305
  Serious: Yes (Other)
  Sender: FDA-Public Use
  Company Number: US-BAYER-2015-478167

PATIENT
  Age: 77 Year
  Sex: Female

DRUGS (3)
  1. LEPIRUDIN [Suspect]
     Active Substance: LEPIRUDIN
  2. HEPARIN [Concomitant]
     Active Substance: HEPARIN SODIUM
     Indication: THROMBOSIS PROPHYLAXIS
  3. DABIGATRAN [Interacting]
     Active Substance: DABIGATRAN
     Indication: ATRIAL FIBRILLATION

REACTIONS (2)
  - Vascular pseudoaneurysm [None]
  - Labelled drug-drug interaction medication error [None]
